FAERS Safety Report 15145596 (Version 1)
Quarter: 2018Q3

REPORT INFORMATION
  Report Type: Spontaneous
  Country: FR (occurrence: FR)
  Receive Date: 20180713
  Receipt Date: 20180713
  Transmission Date: 20181010
  Serious: Yes (Hospitalization)
  Sender: FDA-Public Use
  Company Number: FR-TEVA-2018-FR-867816

PATIENT
  Age: 73 Year
  Sex: Female

DRUGS (3)
  1. LASILIX FAIBLE 20 MG, COMPRIM? [Suspect]
     Active Substance: FUROSEMIDE
     Indication: PRODUCT USED FOR UNKNOWN INDICATION
     Dosage: 20MG/JOUR PUIS AUGMENTATION LE 06/10 ? 40MG/JOR PUIS AUGMENTATION LE 13/10 ? 80MG/JOUR
     Route: 048
     Dates: start: 20170729, end: 20171005
  2. PANTOPRAZOLE [Suspect]
     Active Substance: PANTOPRAZOLE
     Indication: GASTRIC ULCER
     Route: 065
     Dates: start: 201709, end: 20171215
  3. ECONAZOLE [Suspect]
     Active Substance: ECONAZOLE
     Indication: INTERTRIGO
     Dosage: CR?ME EN APPLICATION CUTAN?E
     Route: 003
     Dates: start: 20171011, end: 20171211

REACTIONS (2)
  - Rash pruritic [Recovering/Resolving]
  - Toxic skin eruption [Recovering/Resolving]

NARRATIVE: CASE EVENT DATE: 20171023
